FAERS Safety Report 26208197 (Version 1)
Quarter: 2025Q4

REPORT INFORMATION
  Report Type: Spontaneous
  Country: US (occurrence: None)
  Receive Date: 20251226
  Receipt Date: 20251226
  Transmission Date: 20260117
  Serious: Yes (Hospitalization)
  Sender: FDA-CTU
  Company Number: None

PATIENT
  Age: 54 Year
  Sex: Female
  Weight: 81 kg

DRUGS (1)
  1. UBRELVY [Suspect]
     Active Substance: UBROGEPANT
     Dates: start: 20251220, end: 20251220

REACTIONS (6)
  - Chest discomfort [None]
  - Dyspnoea [None]
  - Dysphagia [None]
  - Dizziness [None]
  - Tinnitus [None]
  - Visual impairment [None]

NARRATIVE: CASE EVENT DATE: 20251220
